FAERS Safety Report 7981350-9 (Version None)
Quarter: 2011Q4

REPORT INFORMATION
  Report Type: 
  Country: None (occurrence: None)
  Receive Date: 20111212
  Receipt Date: 20111129
  Transmission Date: 20120403
  Serious: Yes (Other)
  Sender: FDA-Public Use
  Company Number: 2011P1010056

PATIENT
  Age: 38 Year
  Sex: Female
  Weight: 73 kg

DRUGS (18)
  1. SODIUM IODIDE [Concomitant]
  2. HEPARIN [Concomitant]
  3. DIGOXIN [Concomitant]
  4. DIGOXIN [Concomitant]
  5. PROPACIL (NO PREF. NAME) [Suspect]
     Indication: HYPERTHYROIDISM
     Dosage: 300 MG;QD 200 MG;QD 100 MG;QD
     Dates: start: 20111005, end: 20111011
  6. PROPACIL (NO PREF. NAME) [Suspect]
     Indication: HYPERTHYROIDISM
     Dosage: 300 MG;QD 200 MG;QD 100 MG;QD
     Dates: start: 20111012, end: 20111018
  7. PROPACIL (NO PREF. NAME) [Suspect]
     Indication: HYPERTHYROIDISM
     Dosage: 300 MG;QD 200 MG;QD 100 MG;QD
     Dates: start: 20111019, end: 20111025
  8. DIGILANOGEN C [Concomitant]
  9. LASIX [Concomitant]
  10. SOLDACTONE [Concomitant]
  11. MRCAZOLE (NO PREF. NAME) [Suspect]
     Indication: THYROTOXIC CRISIS
     Dosage: 30 MG;QD 25 MG;QD 20 MG;QD
     Dates: start: 20110904, end: 20110917
  12. MRCAZOLE (NO PREF. NAME) [Suspect]
     Indication: THYROTOXIC CRISIS
     Dosage: 30 MG;QD 25 MG;QD 20 MG;QD
     Dates: start: 20110918, end: 20111004
  13. MRCAZOLE (NO PREF. NAME) [Suspect]
     Indication: THYROTOXIC CRISIS
     Dosage: 30 MG;QD 25 MG;QD 20 MG;QD
     Dates: start: 20110809, end: 20110903
  14. PEPCID [Suspect]
     Indication: GASTRIC ULCER
     Dosage: 40 MG;PO 20 MG;PO
     Route: 048
     Dates: start: 20110809, end: 20110817
  15. PEPCID [Suspect]
     Indication: GASTRIC ULCER
     Dosage: 40 MG;PO 20 MG;PO
     Route: 048
     Dates: start: 20110818, end: 20111004
  16. BETAMETHASONE [Concomitant]
  17. WARFARIN SODIUM [Concomitant]
  18. INDERAL [Concomitant]

REACTIONS (1)
  - RHABDOMYOLYSIS [None]
